FAERS Safety Report 10870791 (Version 1)
Quarter: 2015Q1

REPORT INFORMATION
  Report Type: Spontaneous
  Country: FR (occurrence: FR)
  Receive Date: 20150226
  Receipt Date: 20150226
  Transmission Date: 20150721
  Serious: Yes (Other)
  Sender: FDA-Public Use
  Company Number: FR-DSJP-DSE-2015-104236

PATIENT

DRUGS (2)
  1. COOLMETEC 40 MG/ 25 MG [Suspect]
     Active Substance: HYDROCHLOROTHIAZIDE\OLMESARTAN MEDOXOMIL
     Indication: HYPERTENSION
     Dosage: 40/25 MG, QD
     Route: 048
     Dates: end: 2014
  2. COOLMETEC 40 MG/ 25 MG [Suspect]
     Active Substance: HYDROCHLOROTHIAZIDE\OLMESARTAN MEDOXOMIL
     Dosage: 40/25 MG, QD
     Route: 048
     Dates: start: 2014, end: 201410

REACTIONS (5)
  - Decreased appetite [Recovered/Resolved]
  - Gastrointestinal disorder [Recovered/Resolved]
  - General physical health deterioration [Recovered/Resolved]
  - Weight decreased [Recovered/Resolved]
  - Diarrhoea [Recovered/Resolved]

NARRATIVE: CASE EVENT DATE: 201410
